FAERS Safety Report 7283427-2 (Version None)
Quarter: 2011Q1

REPORT INFORMATION
  Report Type: 
  Country: None (occurrence: None)
  Receive Date: 20110209
  Receipt Date: 20101111
  Transmission Date: 20110831
  Serious: Yes (Other)
  Sender: FDA-Public Use
  Company Number: A0892686A

PATIENT
  Age: 23 Year
  Sex: Female

DRUGS (2)
  1. CHANTIX [Suspect]
     Route: 065
  2. PAXIL [Suspect]
     Route: 065

REACTIONS (1)
  - SUICIDAL IDEATION [None]
